FAERS Safety Report 6683602-1 (Version None)
Quarter: 2010Q2

REPORT INFORMATION
  Report Type: 
  Country: None (occurrence: None)
  Receive Date: 20100413
  Receipt Date: 20100303
  Transmission Date: 20101027
  Serious: Yes (Other)
  Sender: FDA-Public Use
  Company Number: 2009-4201

PATIENT
  Age: 46 Year
  Sex: Male

DRUGS (1)
  1. APO-GO AMPOULES (APO-GO) (APOMORPHINE HYDROCHLORIDE) (APOMORPHINE HYDR [Suspect]
     Indication: PARKINSON'S DISEASE
     Dosage: CONTINUOUS 16 HOURS PER DAY, SUBCUTANEOUS
     Route: 058
     Dates: start: 20081120

REACTIONS (3)
  - HALLUCINATION [None]
  - LOSS OF CONSCIOUSNESS [None]
  - PSYCHIATRIC SYMPTOM [None]
